FAERS Safety Report 4383840-7 (Version None)
Quarter: 2004Q2

REPORT INFORMATION
  Report Type: 
  Country: None (occurrence: None)
  Receive Date: 20040615
  Receipt Date: 20030421
  Transmission Date: 20050107
  Serious: Yes (Hospitalization)
  Sender: FDA-Public Use
  Company Number: 2002US005121

PATIENT
  Sex: Male

DRUGS (2)
  1. PROGRAF [Suspect]
     Indication: LIVER TRANSPLANT
  2. RAPAMUNE [Concomitant]

REACTIONS (2)
  - DRUG LEVEL INCREASED [None]
  - NEPHROPATHY TOXIC [None]
